FAERS Safety Report 6124623-7 (Version None)
Quarter: 2009Q1

REPORT INFORMATION
  Report Type: 
  Country: None (occurrence: None)
  Receive Date: 20090319
  Receipt Date: 20090316
  Transmission Date: 20090719
  Serious: Yes (Life-Threatening)
  Sender: FDA-Public Use
  Company Number: B0552142A

PATIENT
  Age: 55 Year
  Sex: Male
  Weight: 62 kg

DRUGS (13)
  1. FLOLAN [Suspect]
     Indication: PULMONARY HYPERTENSION
     Route: 042
     Dates: start: 20080619
  2. FLOLAN [Suspect]
     Route: 042
     Dates: start: 20080620
  3. FLOLAN [Suspect]
     Route: 042
     Dates: start: 20080621
  4. FLOLAN [Suspect]
     Route: 042
     Dates: start: 20080622
  5. FLOLAN [Suspect]
     Route: 042
     Dates: start: 20080623
  6. FLOLAN [Suspect]
     Route: 042
     Dates: start: 20080624
  7. FLOLAN [Suspect]
     Route: 042
     Dates: start: 20080625
  8. WARFARIN POTASSIUM [Concomitant]
     Indication: PULMONARY HYPERTENSION
     Dosage: 4MG PER DAY
     Route: 048
     Dates: start: 20050801, end: 20080722
  9. FUROSEMIDE [Concomitant]
     Indication: RIGHT VENTRICULAR FAILURE
     Dosage: 40MG PER DAY
     Route: 048
     Dates: start: 20080617
  10. GLEEVEC [Concomitant]
     Indication: PULMONARY HYPERTENSION
     Dosage: 100MG PER DAY
     Route: 048
     Dates: start: 20080623
  11. TRACLEER [Concomitant]
     Indication: PULMONARY HYPERTENSION
     Dosage: 250MG PER DAY
     Route: 048
     Dates: start: 20080514
  12. REVATIO [Concomitant]
     Indication: PULMONARY HYPERTENSION
     Dosage: 30MG PER DAY
     Route: 048
     Dates: start: 20080321
  13. PLAVIX [Concomitant]
     Indication: PULMONARY HYPERTENSION
     Dosage: 758MG PER DAY
     Route: 048
     Dates: start: 20030617, end: 20080722

REACTIONS (1)
  - PULMONARY CONGESTION [None]
